FAERS Safety Report 5373555-0 (Version None)
Quarter: 2007Q2

REPORT INFORMATION
  Report Type: 
  Country: None (occurrence: None)
  Receive Date: 20070628
  Receipt Date: 20051111
  Transmission Date: 20071010
  Serious: Yes (Hospitalization)
  Sender: FDA-Public Use
  Company Number: B0476956A

PATIENT
  Age: 71 Year
  Sex: Male

DRUGS (9)
  1. AUGMENTIN '125' [Suspect]
     Indication: PNEUMONIA BACTERIAL
     Route: 048
     Dates: start: 20051012, end: 20051013
  2. MARCUMAR [Suspect]
     Route: 048
     Dates: start: 20020101, end: 20051016
  3. NEXIUM [Suspect]
     Route: 048
     Dates: start: 20051014
  4. TORSEMIDE [Suspect]
     Route: 048
     Dates: start: 20050501
  5. KLACID [Suspect]
     Indication: PNEUMONIA BACTERIAL
     Route: 040
     Dates: start: 20051014
  6. ROCEPHIN [Concomitant]
     Indication: PNEUMONIA BACTERIAL
     Route: 040
     Dates: start: 20051014
  7. VIAGRA [Concomitant]
     Route: 048
     Dates: start: 20041201
  8. ILOPROST [Concomitant]
     Indication: INTERSTITIAL LUNG DISEASE
     Route: 055
     Dates: start: 20020101
  9. ACETYLCYSTEINE [Concomitant]
     Route: 048
     Dates: start: 20050401

REACTIONS (5)
  - ALANINE AMINOTRANSFERASE INCREASED [None]
  - ASPARTATE AMINOTRANSFERASE INCREASED [None]
  - BLOOD ALKALINE PHOSPHATASE INCREASED [None]
  - BLOOD BILIRUBIN INCREASED [None]
  - HEPATOCELLULAR DAMAGE [None]
